FAERS Safety Report 9779884 (Version 3)
Quarter: 2014Q1

REPORT INFORMATION
  Report Type: Spontaneous
  Country: NO (occurrence: NO)
  Receive Date: 20131223
  Receipt Date: 20140214
  Transmission Date: 20141002
  Serious: Yes (Other)
  Sender: FDA-Public Use
  Company Number: NO-ALLERGAN-1319901US

PATIENT
  Age: 82 Year
  Sex: Female

DRUGS (1)
  1. OZURDEX [Suspect]
     Indication: RETINAL VEIN OCCLUSION
     Dosage: 0.7 MG, SINGLE
     Route: 031
     Dates: start: 20131219, end: 20131219

REACTIONS (2)
  - Complication of device insertion [Unknown]
  - Visual impairment [Unknown]
